FAERS Safety Report 10953844 (Version 1)
Quarter: 2015Q1

REPORT INFORMATION
  Report Type: Other
  Country: PT (occurrence: PT)
  Receive Date: 20150325
  Receipt Date: 20150325
  Transmission Date: 20150721
  Serious: Yes (Disabling)
  Sender: FDA-Public Use
  Company Number: PT-KOWA-15EU000033

PATIENT
  Age: 54 Year
  Sex: Female

DRUGS (3)
  1. ALIPZA [Suspect]
     Active Substance: PITAVASTATIN
     Indication: HYPERCHOLESTEROLAEMIA
     Dosage: UNK
     Route: 048
     Dates: start: 201412, end: 201502
  2. LEVOTHYROXINE SODIUM. [Concomitant]
     Active Substance: LEVOTHYROXINE SODIUM
     Indication: HYPOTHYROIDISM
     Dosage: 0.075 MG, QD
     Route: 048
  3. TOPIRAMATE. [Concomitant]
     Active Substance: TOPIRAMATE
     Indication: MIGRAINE PROPHYLAXIS
     Dosage: 25 MG, QD
     Route: 048

REACTIONS (8)
  - Back pain [Recovering/Resolving]
  - Swelling face [Recovering/Resolving]
  - Dizziness [Recovering/Resolving]
  - Hepatic pain [Recovering/Resolving]
  - Malaise [Recovering/Resolving]
  - Nausea [Recovering/Resolving]
  - Vomiting [Recovering/Resolving]
  - Arthralgia [Recovering/Resolving]

NARRATIVE: CASE EVENT DATE: 201501
